FAERS Safety Report 6438623-0 (Version None)
Quarter: 2009Q4

REPORT INFORMATION
  Report Type: 
  Country: None (occurrence: None)
  Receive Date: 20091112
  Receipt Date: 20091030
  Transmission Date: 20100525
  Serious: Yes (Hospitalization)
  Sender: FDA-Public Use
  Company Number: SE-MYLANLABS-2009S1018915

PATIENT
  Age: 69 Year
  Sex: Male

DRUGS (3)
  1. ISOSORBID MONONITRATE [Suspect]
     Indication: DRUG USE FOR UNKNOWN INDICATION
  2. OMEPRAZOLE [Suspect]
     Indication: DRUG USE FOR UNKNOWN INDICATION
  3. SELOKEN [Suspect]
     Indication: DRUG USE FOR UNKNOWN INDICATION

REACTIONS (2)
  - HYPONATRAEMIA [None]
  - HYPOTENSION [None]
